FAERS Safety Report 16464615 (Version 2)
Quarter: 2020Q1

REPORT INFORMATION
  Report Type: Report from Study
  Country: US (occurrence: US)
  Receive Date: 20190621
  Receipt Date: 20200131
  Transmission Date: 20200409
  Serious: Yes (Other)
  Sender: FDA-Public Use
  Company Number: PHEH2019US025669

PATIENT
  Age: 76 Year
  Sex: Female

DRUGS (1)
  1. COSENTYX [Suspect]
     Active Substance: SECUKINUMAB
     Indication: PSORIASIS
     Dosage: 2 DF, QMO (Q4W)
     Route: 058

REACTIONS (5)
  - Transient ischaemic attack [Unknown]
  - Transient global amnesia [Unknown]
  - Memory impairment [Unknown]
  - Drug ineffective [Unknown]
  - Confusional state [Unknown]
